FAERS Safety Report 9125922 (Version 1)
Quarter: 2013Q1

REPORT INFORMATION
  Report Type: Spontaneous
  Country: GB (occurrence: GB)
  Receive Date: 20130121
  Receipt Date: 20130121
  Transmission Date: 20140127
  Serious: Yes (Other)
  Sender: FDA-Public Use
  Company Number: GB-MYLANLABS-2013S1000493

PATIENT
  Age: 31 Year
  Sex: Male
  Weight: 76.26 kg

DRUGS (2)
  1. OMEPRAZOLE [Suspect]
     Indication: DYSPEPSIA
     Route: 048
     Dates: start: 20121001, end: 20121002
  2. IBUPROFEN [Concomitant]
     Indication: PRODUCT USED FOR UNKNOWN INDICATION
     Route: 048
     Dates: start: 20120907, end: 20120921

REACTIONS (7)
  - Pallor [Recovered/Resolved]
  - Rash erythematous [Recovered/Resolved]
  - Malaise [Recovered/Resolved]
  - Photophobia [Recovered/Resolved]
  - Eye pain [Recovered/Resolved]
  - Vomiting [Recovered/Resolved]
  - Asthenia [Recovered/Resolved]
